FAERS Safety Report 11106268 (Version 3)
Quarter: 2015Q3

REPORT INFORMATION
  Report Type: Report from Study
  Country: BR (occurrence: BR)
  Receive Date: 20150512
  Receipt Date: 20150710
  Transmission Date: 20151125
  Serious: Yes (Other)
  Sender: FDA-Public Use
  Company Number: BR-BAYER-2015-186151

PATIENT
  Age: 66 Year
  Sex: Male
  Weight: 75 kg

DRUGS (3)
  1. AMLODIPINE [Concomitant]
     Active Substance: AMLODIPINE BESYLATE
     Indication: BLOOD PRESSURE ABNORMAL
     Dosage: 1 DF, QD
     Route: 048
  2. NEXAVAR [Suspect]
     Active Substance: SORAFENIB
     Indication: HEPATIC NEOPLASM
     Dosage: 200 MG, BID
     Route: 048
     Dates: start: 201502, end: 20150428
  3. DIURET [Concomitant]
     Indication: MICTURITION DISORDER
     Dosage: 1 DF, QD
     Route: 048

REACTIONS (6)
  - Hepatic cancer [None]
  - Pain in extremity [None]
  - Hypoaesthesia [None]
  - Alopecia [Recovering/Resolving]
  - Scab [Recovered/Resolved]
  - Unevaluable event [None]
